FAERS Safety Report 8367976-1 (Version None)
Quarter: 2012Q2

REPORT INFORMATION
  Report Type: 
  Country: None (occurrence: None)
  Receive Date: 20120517
  Receipt Date: 20120507
  Transmission Date: 20120825
  Serious: Yes (Hospitalization, Other)
  Sender: FDA-Public Use
  Company Number: US-ROCHE-796014

PATIENT
  Sex: Female
  Weight: 87.1 kg

DRUGS (1)
  1. ACCUTANE [Suspect]
     Indication: ACNE
     Route: 065
     Dates: start: 19991001, end: 20000201

REACTIONS (9)
  - INTESTINAL HAEMORRHAGE [None]
  - COLITIS ULCERATIVE [None]
  - DRY EYE [None]
  - INFLAMMATORY BOWEL DISEASE [None]
  - LIP DRY [None]
  - DEPRESSION [None]
  - HAEMORRHOIDS [None]
  - HAEMOGLOBIN DECREASED [None]
  - DRY SKIN [None]
